FAERS Safety Report 23203293 (Version 1)
Quarter: 2023Q4

REPORT INFORMATION
  Report Type: Spontaneous
  Country: US (occurrence: US)
  Receive Date: 20231120
  Receipt Date: 20231120
  Transmission Date: 20240109
  Serious: Yes (Hospitalization)
  Sender: FDA-Public Use
  Company Number: US-AMGEN-USASP2023203930

PATIENT
  Age: 11 Year
  Sex: Male

DRUGS (1)
  1. PROLIA [Suspect]
     Active Substance: DENOSUMAB
     Indication: Fibrous dysplasia of jaw
     Dosage: 80 MILLIGRAM, QMO
     Route: 058

REACTIONS (7)
  - Hypercalcaemia [Recovered/Resolved]
  - Rebound effect [Unknown]
  - Vitamin D decreased [Unknown]
  - Hypercalciuria [Recovered/Resolved]
  - Blood parathyroid hormone decreased [Unknown]
  - Hypocalcaemia [Recovered/Resolved]
  - Off label use [Unknown]
